FAERS Safety Report 18595593 (Version 1)
Quarter: 2020Q4

REPORT INFORMATION
  Report Type: Spontaneous
  Country: GB (occurrence: GB)
  Receive Date: 20201209
  Receipt Date: 20201209
  Transmission Date: 20210114
  Serious: Yes (Other)
  Sender: FDA-Public Use
  Company Number: GB-MYLANLABS-2020M1099323

PATIENT
  Age: 74 Year
  Sex: Female

DRUGS (5)
  1. IMATINIB. [Suspect]
     Active Substance: IMATINIB MESYLATE
     Dosage: UNK
     Route: 065
  2. DASATINIB. [Suspect]
     Active Substance: DASATINIB
     Indication: CHRONIC MYELOID LEUKAEMIA
     Dosage: UNK
     Route: 065
  3. NILOTINIB [Suspect]
     Active Substance: NILOTINIB
     Indication: CHRONIC MYELOID LEUKAEMIA
     Dosage: UNK
     Route: 065
  4. PONATINIB [Suspect]
     Active Substance: PONATINIB
     Indication: CHRONIC MYELOID LEUKAEMIA
     Dosage: UNK
     Route: 065
  5. IMATINIB. [Suspect]
     Active Substance: IMATINIB MESYLATE
     Indication: CHRONIC MYELOID LEUKAEMIA
     Dosage: 100 MG
     Route: 065

REACTIONS (7)
  - Therapy non-responder [Unknown]
  - Rash [Recovered/Resolved]
  - Pleural effusion [Unknown]
  - Swelling face [Unknown]
  - Liver function test increased [Unknown]
  - Drug intolerance [Unknown]
  - Myelosuppression [Unknown]
